FAERS Safety Report 8749510 (Version 2)
Quarter: 2012Q4

REPORT INFORMATION
  Report Type: Spontaneous
  Country: US (occurrence: None)
  Receive Date: 20120808
  Receipt Date: 20120816
  Transmission Date: 20130627
  Serious: Yes (Hospitalization)
  Sender: FDA-Public Use
  Company Number: JPI-P-023098

PATIENT
  Age: 60 Year
  Sex: Female

DRUGS (2)
  1. XYREM [Suspect]
     Indication: SLEEP DISORDER
     Dosage: ORAL
     Route: 048
     Dates: start: 20110726
  2. XYREM [Suspect]
     Indication: INSOMNIA
     Dosage: ORAL
     Route: 048
     Dates: start: 20110726

REACTIONS (34)
  - Anxiety [None]
  - Hypothyroidism [None]
  - Weight increased [None]
  - Intentional self-injury [None]
  - Agoraphobia [None]
  - Depression [None]
  - Condition aggravated [None]
  - Feeling abnormal [None]
  - Poor quality sleep [None]
  - Crying [None]
  - Tachyphrenia [None]
  - Panic disorder [None]
  - Palpitations [None]
  - Tremor [None]
  - Hyperventilation [None]
  - Liver function test abnormal [None]
  - Diabetes mellitus [None]
  - Blood cholesterol increased [None]
  - Blood pressure increased [None]
  - Cataract operation [None]
  - High density lipoprotein increased [None]
  - Low density lipoprotein increased [None]
  - Blood pressure decreased [None]
  - Blood pressure systolic increased [None]
  - Blood glucose increased [None]
  - Sleep disorder [None]
  - Nausea [None]
  - Decreased appetite [None]
  - Insomnia [None]
  - Fatigue [None]
  - Vision blurred [None]
  - Paraesthesia [None]
  - Joint dislocation [None]
  - Fall [None]
